FAERS Safety Report 6979745-5 (Version None)
Quarter: 2010Q3

REPORT INFORMATION
  Report Type: 
  Country: None (occurrence: None)
  Receive Date: 20100914
  Receipt Date: 20100909
  Transmission Date: 20110219
  Serious: Yes (Hospitalization)
  Sender: FDA-Public Use
  Company Number: US-ASTRAZENECA-2006UW12253

PATIENT
  Age: 16205 Day
  Sex: Female
  Weight: 87.1 kg

DRUGS (18)
  1. SEROQUEL [Suspect]
     Indication: SCHIZOPHRENIA
     Dosage: 100-600 MG
     Route: 048
     Dates: start: 20000712
  2. SEROQUEL [Suspect]
     Indication: DEPRESSION
     Dosage: 100-600 MG
     Route: 048
     Dates: start: 20000712
  3. SEROQUEL [Suspect]
     Dosage: 200 TO 900 MG
     Route: 048
     Dates: start: 20000801, end: 20070801
  4. SEROQUEL [Suspect]
     Dosage: 200 TO 900 MG
     Route: 048
     Dates: start: 20000801, end: 20070801
  5. GEODON [Concomitant]
     Dates: start: 20020101
  6. RISPERDAL [Concomitant]
     Dates: start: 19940101
  7. RISPERDAL [Concomitant]
     Dates: start: 19950101, end: 19960101
  8. ZYPREXA [Concomitant]
     Dates: start: 19970101, end: 20000101
  9. ZYPREXA [Concomitant]
     Dates: start: 19980101, end: 20040101
  10. ZYPREXA [Concomitant]
     Dosage: 5-10 MG,HS
     Route: 048
     Dates: start: 20000713
  11. REMERON [Concomitant]
     Route: 048
     Dates: start: 20000713
  12. CELEBREX [Concomitant]
     Route: 048
     Dates: start: 20000713
  13. ZOLOFT [Concomitant]
     Dates: start: 20040826
  14. PAXIL [Concomitant]
     Route: 048
     Dates: start: 20020204
  15. KLONOPIN [Concomitant]
     Route: 048
     Dates: start: 20020204
  16. NEURONTIN [Concomitant]
     Route: 048
     Dates: start: 20020204
  17. VISTARIL [Concomitant]
     Route: 048
     Dates: start: 20020204
  18. LUVOX [Concomitant]
     Dates: start: 20000822

REACTIONS (7)
  - BLOOD CHOLESTEROL INCREASED [None]
  - BLOOD TRIGLYCERIDES INCREASED [None]
  - CHOLELITHIASIS [None]
  - GALLBLADDER DISORDER [None]
  - HYPERGLYCAEMIA [None]
  - HYPERLIPIDAEMIA [None]
  - PANCREATITIS [None]
